FAERS Safety Report 9439303 (Version 1)
Quarter: 2013Q3

REPORT INFORMATION
  Report Type: Spontaneous
  Country: US (occurrence: US)
  Receive Date: 20130804
  Receipt Date: 20130804
  Transmission Date: 20140515
  Serious: No
  Sender: FDA-Public Use
  Company Number: US-B.I. PHARMACEUTICALS,INC./RIDGEFIELD-2013-BI-22623BP

PATIENT
  Age: 68 Year
  Sex: Female

DRUGS (4)
  1. COMBIVENT [Suspect]
     Indication: ASTHMA
     Dosage: STRENGTH: 20 MCG / 100 MCG; DAILY DOSE: 40 MCG/ 200 MCG
     Route: 055
     Dates: start: 201307
  2. CLARITIN [Concomitant]
     Route: 048
  3. VITAMIN [Concomitant]
     Route: 048
  4. CALCIUM [Concomitant]
     Route: 048

REACTIONS (2)
  - Cough [Not Recovered/Not Resolved]
  - Off label use [Not Recovered/Not Resolved]
